FAERS Safety Report 10458806 (Version 1)
Quarter: 2014Q3

REPORT INFORMATION
  Report Type: Spontaneous
  Country: US (occurrence: None)
  Receive Date: 20140916
  Receipt Date: 20140916
  Transmission Date: 20150326
  Serious: Yes (Life-Threatening)
  Sender: FDA-Public Use
  Company Number: None

PATIENT
  Age: 38 Year
  Sex: Female
  Weight: 59.42 kg

DRUGS (1)
  1. LEVETIRACTAM [Suspect]
     Active Substance: LEVETIRACETAM
     Dosage: 1000, BID, ORAL
     Route: 048
     Dates: start: 2012, end: 2013

REACTIONS (2)
  - Cognitive disorder [None]
  - Quality of life decreased [None]

NARRATIVE: CASE EVENT DATE: 20130806
